FAERS Safety Report 4887986-6 (Version None)
Quarter: 2006Q1

REPORT INFORMATION
  Report Type: 
  Country: None (occurrence: None)
  Receive Date: 20060123
  Receipt Date: 20051005
  Transmission Date: 20060701
  Serious: Yes (Hospitalization, Other)
  Sender: FDA-Public Use
  Company Number: US-MERCK-0510USA04075

PATIENT
  Age: 48 Year
  Sex: Male
  Weight: 98 kg

DRUGS (5)
  1. VIOXX [Suspect]
     Indication: PAIN
     Route: 048
     Dates: start: 20011001, end: 20020301
  2. [THERAPY UNSPECIFIED] [Concomitant]
     Route: 065
  3. ATENOLOL [Concomitant]
     Route: 065
  4. ASPIRIN [Concomitant]
     Route: 065
  5. DIOVAN HCT [Concomitant]
     Route: 065

REACTIONS (2)
  - CONGENITAL HEART VALVE DISORDER [None]
  - ISCHAEMIC STROKE [None]
